FAERS Safety Report 16569011 (Version 3)
Quarter: 2019Q3

REPORT INFORMATION
  Report Type: Spontaneous
  Country: PL (occurrence: PL)
  Receive Date: 20190713
  Receipt Date: 20190809
  Transmission Date: 20191004
  Serious: Yes (Hospitalization, Other)
  Sender: FDA-Public Use
  Company Number: PHHY2019PL159585

PATIENT
  Age: 72 Year
  Sex: Female

DRUGS (3)
  1. DEXAVEN [Suspect]
     Active Substance: DEXAMETHASONE
     Indication: URTICARIA CHRONIC
     Dosage: UNK
     Route: 065
  2. ACETYLSALICYLIC ACID [Suspect]
     Active Substance: ASPIRIN
     Indication: CAROTID ARTERY STENOSIS
     Dosage: UNK
     Route: 065
  3. ACETYLSALICYLIC ACID [Suspect]
     Active Substance: ASPIRIN
     Indication: INTERNAL CAROTID ARTERY DEFORMITY

REACTIONS (7)
  - Angioedema [Recovered/Resolved]
  - Drug ineffective [Unknown]
  - Urticaria [Recovered/Resolved]
  - Drug hypersensitivity [Recovering/Resolving]
  - Urticaria chronic [Unknown]
  - Product use in unapproved indication [Unknown]
  - Off label use [Unknown]

NARRATIVE: CASE EVENT DATE: 201609
